FAERS Safety Report 6511974-7 (Version None)
Quarter: 2009Q4

REPORT INFORMATION
  Report Type: 
  Country: None (occurrence: None)
  Receive Date: 20091222
  Receipt Date: 20090619
  Transmission Date: 20100525
  Serious: No
  Sender: FDA-Public Use
  Company Number: US-ASTRAZENECA-2009UW16237

PATIENT
  Age: 77 Year
  Sex: Female
  Weight: 72.6 kg

DRUGS (9)
  1. CRESTOR [Suspect]
     Indication: BLOOD CHOLESTEROL INCREASED
     Route: 048
     Dates: start: 20081101
  2. TOPROL-XL [Concomitant]
  3. COREG [Concomitant]
  4. LOTREL [Concomitant]
  5. ASPIRIN [Concomitant]
  6. CALCIUM PILL [Concomitant]
  7. MULTI-VITAMIN [Concomitant]
  8. FUROSEMIDE [Concomitant]
     Indication: DIURETIC THERAPY
  9. LUMIGAN EYE DROPS [Concomitant]
     Indication: GLAUCOMA

REACTIONS (1)
  - HYPOACUSIS [None]
